FAERS Safety Report 7001679-0 (Version None)
Quarter: 2010Q3

REPORT INFORMATION
  Report Type: 
  Country: None (occurrence: None)
  Receive Date: 20100920
  Receipt Date: 20100915
  Transmission Date: 20110219
  Serious: Yes (Other)
  Sender: FDA-Public Use
  Company Number: DE-PFIZER INC-2010116527

PATIENT
  Age: 67 Year
  Sex: Female

DRUGS (2)
  1. CELEBREX [Suspect]
     Indication: OSTEOARTHRITIS
     Dosage: UNK
     Route: 048
     Dates: start: 20100825
  2. CLINDAMYCIN HCL [Interacting]
     Indication: TOOTH INFECTION
     Dosage: UNK
     Route: 048
     Dates: start: 20100914

REACTIONS (4)
  - DRUG INTERACTION [None]
  - NEURALGIA [None]
  - OEDEMA PERIPHERAL [None]
  - TOOTH INFECTION [None]
